FAERS Safety Report 19325360 (Version 1)
Quarter: 2021Q2

REPORT INFORMATION
  Report Type: Spontaneous
  Country: CH (occurrence: CH)
  Receive Date: 20210528
  Receipt Date: 20210528
  Transmission Date: 20210717
  Serious: Yes (Hospitalization)
  Sender: FDA-Public Use
  Company Number: CH-ROCHE-2835476

PATIENT
  Age: 76 Year
  Sex: Male

DRUGS (7)
  1. CONCOR [Concomitant]
     Active Substance: BISOPROLOL FUMARATE
  2. COMIRNATY [Suspect]
     Active Substance: TOZINAMERAN
     Indication: COVID-19 IMMUNISATION
     Dosage: PRIMA DOSE.
     Route: 030
     Dates: start: 20210323, end: 20210323
  3. COMIRNATY [Suspect]
     Active Substance: TOZINAMERAN
     Dosage: SECONDA DOSE.
     Route: 030
     Dates: start: 20210424, end: 20210424
  4. CARBOPLATIN. [Suspect]
     Active Substance: CARBOPLATIN
     Indication: NEOPLASM MALIGNANT
     Route: 042
     Dates: start: 20210329, end: 20210329
  5. ETOPOPHOS [Suspect]
     Active Substance: ETOPOSIDE PHOSPHATE
     Indication: NEOPLASM MALIGNANT
     Route: 042
     Dates: start: 20210329, end: 20210331
  6. ZYLORIC [Concomitant]
     Active Substance: ALLOPURINOL
  7. TECENTRIQ [Suspect]
     Active Substance: ATEZOLIZUMAB
     Indication: NEOPLASM MALIGNANT
     Route: 065

REACTIONS (3)
  - Troponin increased [Recovering/Resolving]
  - Liver disorder [Recovering/Resolving]
  - Myositis [Recovering/Resolving]

NARRATIVE: CASE EVENT DATE: 20210504
